FAERS Safety Report 18906616 (Version 1)
Quarter: 2021Q1

REPORT INFORMATION
  Report Type: Spontaneous
  Country: DE (occurrence: DE)
  Receive Date: 20210217
  Receipt Date: 20210217
  Transmission Date: 20210420
  Serious: Yes (Other)
  Sender: FDA-Public Use
  Company Number: DE-ASTRAZENECA-2021A045948

PATIENT
  Age: 61 Year
  Sex: Male

DRUGS (3)
  1. CARBOPLATIN/GEMCITABINE [Concomitant]
     Dates: start: 202007, end: 202011
  2. VINORELBINE MONO [Concomitant]
     Dates: start: 202011
  3. OSIMERTINIB. [Suspect]
     Active Substance: OSIMERTINIB
     Indication: NON-SMALL CELL LUNG CANCER
     Route: 048
     Dates: start: 201809

REACTIONS (12)
  - Metastases to lung [Unknown]
  - Metastases to adrenals [Unknown]
  - Neutropenia [Unknown]
  - General physical health deterioration [Unknown]
  - Cough [Unknown]
  - Weight decreased [Unknown]
  - Metastases to central nervous system [Unknown]
  - Malignant neoplasm progression [Unknown]
  - Fatigue [Unknown]
  - Pericardial effusion malignant [Unknown]
  - Lymphangiosis carcinomatosa [Unknown]
  - Dyspnoea [Unknown]

NARRATIVE: CASE EVENT DATE: 201810
